FAERS Safety Report 10250945 (Version 2)
Quarter: 2014Q3

REPORT INFORMATION
  Report Type: Spontaneous
  Country: FR (occurrence: FR)
  Receive Date: 20140620
  Receipt Date: 20140708
  Transmission Date: 20150326
  Serious: Yes (Hospitalization)
  Sender: FDA-Public Use
  Company Number: FR-PFIZER INC-2014167919

PATIENT
  Age: 34 Year
  Sex: Female

DRUGS (7)
  1. SOLU-MEDROL [Suspect]
     Active Substance: METHYLPREDNISOLONE SODIUM SUCCINATE
     Dosage: UNK
     Route: 042
     Dates: start: 20140218, end: 20140218
  2. ADRENALINE [Suspect]
     Active Substance: EPINEPHRINE
     Indication: NAUSEA
  3. POLARAMINE [Suspect]
     Active Substance: DEXCHLORPHENIRAMINE MALEATE
     Dosage: 5 MG/1 ML
     Route: 042
     Dates: start: 20140218, end: 20140218
  4. ADRENALINE [Suspect]
     Active Substance: EPINEPHRINE
     Indication: MALAISE
     Dosage: 0.1 MG SINGLE DOSE
     Route: 042
     Dates: start: 20140218, end: 20140218
  5. IZILOX [Suspect]
     Active Substance: MOXIFLOXACIN HYDROCHLORIDE
     Indication: SINUSITIS
     Dosage: 400 MG, 1X/DAY
     Route: 048
     Dates: start: 20140218, end: 20140218
  6. ADRENALINE [Suspect]
     Active Substance: EPINEPHRINE
     Indication: BLOOD PRESSURE DECREASED
  7. ADRENALINE [Suspect]
     Active Substance: EPINEPHRINE
     Indication: VOMITING

REACTIONS (5)
  - Blood pressure decreased [Recovered/Resolved]
  - Malaise [Recovered/Resolved]
  - Vomiting [Recovered/Resolved]
  - Nausea [Recovered/Resolved]
  - Ischaemic stroke [Recovered/Resolved]

NARRATIVE: CASE EVENT DATE: 20140218
